FAERS Safety Report 16848856 (Version 1)
Quarter: 2019Q3

REPORT INFORMATION
  Report Type: Spontaneous
  Country: US (occurrence: US)
  Receive Date: 20190925
  Receipt Date: 20190925
  Transmission Date: 20191005
  Serious: No
  Sender: FDA-Public Use
  Company Number: US-GLAXOSMITHKLINE-US2019AMR170765

PATIENT
  Age: 68 Year
  Sex: Female

DRUGS (3)
  1. BELIMUMAB SOLUTION FOR INFUSION [Suspect]
     Active Substance: BELIMUMAB
     Indication: SYSTEMIC LUPUS ERYTHEMATOSUS
     Dosage: UNK
     Route: 042
  2. BELIMUMAB SOLUTION FOR INFUSION [Suspect]
     Active Substance: BELIMUMAB
     Dosage: 790.9 MG, UNK
     Route: 042
     Dates: start: 201909
  3. BELIMUMAB SOLUTION FOR INFUSION [Suspect]
     Active Substance: BELIMUMAB
     Dosage: 790.91 MG, UNK
     Route: 042
     Dates: start: 20190814

REACTIONS (1)
  - Expired product administered [Unknown]
